FAERS Safety Report 14962150 (Version 5)
Quarter: 2018Q4

REPORT INFORMATION
  Report Type: Other
  Country: PT (occurrence: PT)
  Receive Date: 20180601
  Receipt Date: 20181230
  Transmission Date: 20190204
  Serious: Yes (Hospitalization, Other)
  Sender: FDA-Public Use
  Company Number: FR-MERCK KGAA-2048846

PATIENT
  Age: 26 Year
  Sex: Male

DRUGS (16)
  1. TESTOSTERONE CYPIONATE. [Suspect]
     Active Substance: TESTOSTERONE CYPIONATE
  2. STANOZOLOL [Suspect]
     Active Substance: STANOZOLOL
  3. DROSTANOLONE PROPIONATE [Suspect]
     Active Substance: DROMOSTANOLONE PROPIONATE
  4. LIOTHYRONINE [Suspect]
     Active Substance: LIOTHYRONINE
  5. MESTEROLONE [Suspect]
     Active Substance: MESTEROLONE
  6. ALTIZIDE [Suspect]
     Active Substance: ALTHIAZIDE
  7. TRENBOLONE [Suspect]
     Active Substance: TRENBOLONE
  8. SUSTANON [Suspect]
     Active Substance: TESTOSTERONE
  9. SPIRONOLACTONE. [Suspect]
     Active Substance: SPIRONOLACTONE
  10. CLENBUTEROL [Suspect]
     Active Substance: CLENBUTEROL
  11. ANASTROZOLE. [Suspect]
     Active Substance: ANASTROZOLE
     Route: 048
  12. CABERGOLINE. [Suspect]
     Active Substance: CABERGOLINE
  13. MULTIVITAMINS [Suspect]
     Active Substance: VITAMINS
  14. TESTOSTERONE ENANTHATE. [Suspect]
     Active Substance: TESTOSTERONE ENANTHATE
  15. EUTHYROX [Suspect]
     Active Substance: LEVOTHYROXINE SODIUM
     Indication: PERFORMANCE ENHANCING PRODUCT USE
  16. FLUOXYMESTERONE [Suspect]
     Active Substance: FLUOXYMESTERONE

REACTIONS (12)
  - Diabetes mellitus [Recovered/Resolved]
  - Glucose tolerance decreased [Unknown]
  - Blood glucose increased [Unknown]
  - Drug abuse [Unknown]
  - Secondary hypogonadism [Unknown]
  - Haematocrit increased [Unknown]
  - Off label use [Unknown]
  - Product use in unapproved indication [Unknown]
  - Secondary hypogonadism [Recovered/Resolved]
  - Autoimmune thyroiditis [Recovered/Resolved]
  - Product use issue [Unknown]
  - Performance enhancing product use [Unknown]
